FAERS Safety Report 9879804 (Version 3)
Quarter: 2014Q2

REPORT INFORMATION
  Report Type: Spontaneous
  Country: GB (occurrence: GB)
  Receive Date: 20140206
  Receipt Date: 20140416
  Transmission Date: 20141212
  Serious: Yes (Hospitalization, Disabling)
  Sender: FDA-Public Use
  Company Number: PHHY2014GB011602

PATIENT
  Age: 60 Year
  Sex: Female
  Weight: 78.46 kg

DRUGS (9)
  1. 5-FLUOROURACIL [Suspect]
     Indication: BREAST CANCER FEMALE
     Route: 051
     Dates: start: 200006
  2. EPIRUBICIN [Suspect]
     Indication: BREAST CANCER FEMALE
     Route: 051
     Dates: start: 200006
  3. EPIRUBICIN [Suspect]
     Route: 051
     Dates: start: 200006, end: 200010
  4. CYCLOPHOSPHAMIDE [Suspect]
     Indication: BREAST CANCER FEMALE
     Route: 051
     Dates: start: 200006
  5. OXYCONTIN [Concomitant]
     Dosage: 1600 MG, REDUCED TO 40MGS.
  6. OXYCONTIN [Concomitant]
     Dosage: REDUCED TO 40MGS.
  7. ADCAL [Concomitant]
     Indication: BONE DISORDER
  8. FORSTEO [Concomitant]
     Indication: BONE DISORDER
  9. KETAMINE [Concomitant]

REACTIONS (3)
  - Spinal fracture [Not Recovered/Not Resolved]
  - Pain [Unknown]
  - Osteopenia [Unknown]
